FAERS Safety Report 25832277 (Version 2)
Quarter: 2025Q3

REPORT INFORMATION
  Report Type: Other
  Country: US (occurrence: US)
  Receive Date: 20250922
  Receipt Date: 20250922
  Transmission Date: 20251021
  Serious: No
  Sender: TRAVERE THERAPEUTICS
  Company Number: US-TRAVERE-2025TVT01411

PATIENT
  Age: 25 Year
  Sex: Male

DRUGS (2)
  1. FILSPARI [Suspect]
     Active Substance: SPARSENTAN
     Indication: IgA nephropathy
     Route: 048
     Dates: start: 20250716
  2. FILSPARI [Suspect]
     Active Substance: SPARSENTAN
     Route: 048

REACTIONS (5)
  - Blood pressure decreased [Recovered/Resolved]
  - Dizziness [None]
  - Hypoaesthesia [Recovered/Resolved]
  - Blood triglycerides decreased [Unknown]
  - Low density lipoprotein increased [Unknown]
